FAERS Safety Report 9149945 (Version 1)
Quarter: 2013Q1

REPORT INFORMATION
  Report Type: Spontaneous
  Country: US (occurrence: US)
  Receive Date: 20130308
  Receipt Date: 20130308
  Transmission Date: 20140127
  Serious: No
  Sender: FDA-Public Use
  Company Number: US-ENDO PHARMACEUTICALS INC.-OPCR20120678

PATIENT
  Sex: Male

DRUGS (3)
  1. OPANA ER [Suspect]
     Indication: PAIN
     Route: 048
     Dates: start: 201204
  2. OPANA ER [Suspect]
     Indication: FALL
  3. OPANA ER [Suspect]
     Indication: INTERVERTEBRAL DISC PROTRUSION

REACTIONS (5)
  - Scab [Unknown]
  - Pruritus [Unknown]
  - Nausea [Unknown]
  - Constipation [Unknown]
  - Drug effect delayed [Not Recovered/Not Resolved]
